FAERS Safety Report 16633601 (Version 2)
Quarter: 2019Q3

REPORT INFORMATION
  Report Type: Spontaneous
  Country: US (occurrence: US)
  Receive Date: 20190725
  Receipt Date: 20190820
  Transmission Date: 20191004
  Serious: No
  Sender: FDA-Public Use
  Company Number: US-STRONGBRIDGE BIOPHARMA-2019-STR-000191

PATIENT
  Age: 32 Year
  Sex: Male

DRUGS (2)
  1. KEVEYIS [Suspect]
     Active Substance: DICHLORPHENAMIDE
     Dosage: 25 MG, EVERY OTHER DAY
     Route: 048
     Dates: start: 201907
  2. KEVEYIS [Suspect]
     Active Substance: DICHLORPHENAMIDE
     Indication: FAMILIAL PERIODIC PARALYSIS
     Dosage: 50 MG, BID
     Route: 048
     Dates: start: 20190720

REACTIONS (5)
  - Muscle spasms [Unknown]
  - Asthenia [Unknown]
  - Muscle spasms [Not Recovered/Not Resolved]
  - Paraesthesia [Unknown]
  - Hypoaesthesia [Not Recovered/Not Resolved]

NARRATIVE: CASE EVENT DATE: 201907
